FAERS Safety Report 20030876 (Version 1)
Quarter: 2021Q4

REPORT INFORMATION
  Report Type: Spontaneous
  Country: JP (occurrence: JP)
  Receive Date: 20211103
  Receipt Date: 20211103
  Transmission Date: 20220303
  Serious: Yes (Hospitalization)
  Sender: FDA-Public Use
  Company Number: JP-Eisai-202106876_LEN-HCC_P_1

PATIENT
  Sex: Male

DRUGS (2)
  1. LENVATINIB [Suspect]
     Active Substance: LENVATINIB
     Indication: Hepatocellular carcinoma
     Route: 048
     Dates: start: 2019, end: 2019
  2. LENVATINIB [Suspect]
     Active Substance: LENVATINIB
     Dosage: 5 DAYS ON/2 DAYS OFF
     Route: 048
     Dates: start: 2019

REACTIONS (1)
  - Proteinuria [Recovered/Resolved]

NARRATIVE: CASE EVENT DATE: 20191030
